FAERS Safety Report 8264034 (Version 3)
Quarter: 2013Q3

REPORT INFORMATION
  Report Type: Spontaneous
  Country: ES (occurrence: ES)
  Receive Date: 20111128
  Receipt Date: 20130708
  Transmission Date: 20140515
  Serious: Yes (Other)
  Sender: FDA-Public Use
  Company Number: ES-JNJFOC-20111106734

PATIENT
  Age: 15 Year
  Sex: Female

DRUGS (4)
  1. INFLIXIMAB, RECOMBINANT [Suspect]
     Indication: PYODERMA GANGRENOSUM
     Dosage: 9 DOSES
     Route: 042
  2. INFLIXIMAB, RECOMBINANT [Suspect]
     Indication: PYODERMA GANGRENOSUM
     Dosage: WEEKS 0, 2 AND 6
     Route: 042
  3. INFLIXIMAB, RECOMBINANT [Suspect]
     Indication: CROHN^S DISEASE
     Dosage: 9 DOSES
     Route: 042
  4. INFLIXIMAB, RECOMBINANT [Suspect]
     Indication: CROHN^S DISEASE
     Dosage: WEEKS 0, 2 AND 6
     Route: 042

REACTIONS (1)
  - Drug ineffective [Unknown]
